FAERS Safety Report 6082285-1 (Version None)
Quarter: 2009Q1

REPORT INFORMATION
  Report Type: 
  Country: None (occurrence: None)
  Receive Date: 20090218
  Receipt Date: 20090209
  Transmission Date: 20090719
  Serious: Yes (Life-Threatening, Hospitalization, Other)
  Sender: FDA-Public Use
  Company Number: US-BAYER-200837006NA

PATIENT
  Age: 13 Year
  Sex: Male
  Weight: 29 kg

DRUGS (10)
  1. MAGNEVIST [Suspect]
     Indication: NUCLEAR MAGNETIC RESONANCE IMAGING BRAIN
     Dosage: TOTAL DAILY DOSE: 6 ML  UNIT DOSE: 10 ML
     Route: 042
     Dates: start: 20080929, end: 20080929
  2. ALBUTEROL [Concomitant]
  3. ALBUTEROL [Concomitant]
  4. EPIPEN JR. [Concomitant]
  5. GROWTH HORMONE REPLACEMENT [Concomitant]
  6. NASAL SPRAY [Concomitant]
  7. ALBUTEROL SULFATE [Concomitant]
     Route: 055
     Dates: start: 20081111
  8. ALBUTEROL SULFATE [Concomitant]
     Route: 055
     Dates: start: 20081118
  9. GLYCOLAX [Concomitant]
     Route: 048
     Dates: start: 20081120
  10. MIRALAX [Concomitant]

REACTIONS (37)
  - ABDOMINAL PAIN [None]
  - ANAPHYLACTIC REACTION [None]
  - APNOEA [None]
  - AUTONOMIC NERVOUS SYSTEM IMBALANCE [None]
  - BACTERIAL CULTURE POSITIVE [None]
  - BLOOD AMYLASE INCREASED [None]
  - BLOOD CREATININE INCREASED [None]
  - BLOOD PRESSURE INCREASED [None]
  - BRAIN OEDEMA [None]
  - BRONCHOSPASM [None]
  - CARDIAC ARREST [None]
  - CARDIO-RESPIRATORY ARREST [None]
  - COMA [None]
  - COMMUNICATION DISORDER [None]
  - CONVULSION [None]
  - COUGH [None]
  - DIABETES INSIPIDUS [None]
  - DYSPNOEA [None]
  - ELECTROENCEPHALOGRAM ABNORMAL [None]
  - ENCEPHALOPATHY [None]
  - HEART RATE INCREASED [None]
  - HEPATIC ENZYME INCREASED [None]
  - HYPOXIA [None]
  - LIPASE INCREASED [None]
  - MECHANICAL VENTILATION [None]
  - MYOCLONIC EPILEPSY [None]
  - NERVOUS SYSTEM DISORDER [None]
  - PAIN [None]
  - PANCREATITIS [None]
  - PYREXIA [None]
  - RESPIRATORY FAILURE [None]
  - TEMPERATURE REGULATION DISORDER [None]
  - UNRESPONSIVE TO STIMULI [None]
  - VISUAL TRACKING TEST ABNORMAL [None]
  - VOCAL CORD PARALYSIS [None]
  - VOMITING [None]
  - WHITE BLOOD CELL COUNT INCREASED [None]
